FAERS Safety Report 9459717 (Version 1)
Quarter: 2013Q3

REPORT INFORMATION
  Report Type: Spontaneous
  Country: US (occurrence: US)
  Receive Date: 20130815
  Receipt Date: 20130815
  Transmission Date: 20140515
  Serious: No
  Sender: FDA-Public Use
  Company Number: US-BAYER-2013-097763

PATIENT
  Age: 42 Year
  Sex: Female

DRUGS (5)
  1. ALEVE CAPLET [Suspect]
     Dosage: UNK
  2. CELEBREX [Concomitant]
     Dosage: 1 DF, QD
  3. LYRICA [Concomitant]
     Dosage: 1 DF, BID
  4. NEXIUM [Concomitant]
     Dosage: 1 DF, QD
  5. REQUIP [Concomitant]
     Dosage: 1 DF, QD

REACTIONS (2)
  - Swelling [None]
  - Pruritus [None]
